FAERS Safety Report 8806202 (Version 1)
Quarter: 2012Q4

REPORT INFORMATION
  Report Type: Spontaneous
  Country: US (occurrence: None)
  Receive Date: 20120919
  Receipt Date: 20120919
  Transmission Date: 20130627
  Serious: Yes (Other)
  Sender: FDA-Public Use
  Company Number: None

PATIENT
  Age: 81 Year
  Sex: Female
  Weight: 50.35 kg

DRUGS (1)
  1. RECLAST [Suspect]
     Route: 042

REACTIONS (4)
  - Urticaria [None]
  - Pruritus [None]
  - Erythema [None]
  - Hyperaesthesia [None]
